FAERS Safety Report 4396429-0 (Version None)
Quarter: 2004Q3

REPORT INFORMATION
  Report Type: 
  Country: None (occurrence: None)
  Receive Date: 20040709
  Receipt Date: 20040624
  Transmission Date: 20050211
  Serious: Yes (Other)
  Sender: FDA-Public Use
  Company Number: GB-JNJFOC-20040606658

PATIENT

DRUGS (1)
  1. REMICADE [Suspect]
     Dosage: INTRAVENOUS
     Route: 042

REACTIONS (2)
  - BRONCHIECTASIS [None]
  - PNEUMOCYSTIS CARINII PNEUMONIA [None]
